FAERS Safety Report 21577200 (Version 1)
Quarter: 2022Q4

REPORT INFORMATION
  Report Type: Spontaneous
  Country: ES (occurrence: ES)
  Receive Date: 20221110
  Receipt Date: 20221110
  Transmission Date: 20230113
  Serious: Yes (Other)
  Sender: FDA-Public Use
  Company Number: ES-002147023-NVSC2022ES252929

PATIENT
  Age: 57 Year
  Sex: Male

DRUGS (1)
  1. LUTATHERA [Suspect]
     Active Substance: LUTETIUM OXODOTREOTIDE LU-177
     Indication: Product used for unknown indication
     Dosage: UNK (INJECTION) (THE PATIENT WAS RECEIVED 7TH DOSE AND 8TH DOSE WAS SEQUENCE)
     Route: 065
     Dates: end: 20221108

REACTIONS (1)
  - Disease progression [Unknown]
